FAERS Safety Report 7415183-9 (Version None)
Quarter: 2011Q2

REPORT INFORMATION
  Report Type: 
  Country: None (occurrence: None)
  Receive Date: 20110414
  Receipt Date: 20110407
  Transmission Date: 20111010
  Serious: Yes (Other)
  Sender: FDA-Public Use
  Company Number: PHHY2011US24977

PATIENT
  Sex: Female
  Weight: 36.281 kg

DRUGS (2)
  1. INTUNIV [Concomitant]
  2. FOCALIN XR [Suspect]
     Indication: ATTENTION DEFICIT/HYPERACTIVITY DISORDER
     Dosage: 20 MG, BID
     Route: 048

REACTIONS (5)
  - PLATELET COUNT DECREASED [None]
  - CONTUSION [None]
  - DEPRESSION [None]
  - WEIGHT DECREASED [None]
  - FATIGUE [None]
